FAERS Safety Report 5702542-5 (Version None)
Quarter: 2008Q2

REPORT INFORMATION
  Report Type: 
  Country: None (occurrence: None)
  Receive Date: 20080411
  Receipt Date: 20070316
  Transmission Date: 20081010
  Serious: Yes (Other)
  Sender: FDA-Public Use
  Company Number: US-ASTRAZENECA-2007UW05011

PATIENT
  Sex: Female

DRUGS (2)
  1. TENORMIN [Suspect]
     Route: 048
  2. TENORETIC 100 [Suspect]
     Route: 048

REACTIONS (1)
  - ASTHMA [None]
